FAERS Safety Report 8403761-X (Version None)
Quarter: 2012Q2

REPORT INFORMATION
  Report Type: 
  Country: None (occurrence: None)
  Receive Date: 20120601
  Receipt Date: 20110825
  Transmission Date: 20120825
  Serious: No
  Sender: FDA-Public Use
  Company Number: US-NOVEN-11US003059

PATIENT
  Sex: Female
  Weight: 23.583 kg

DRUGS (3)
  1. DAYTRANA [Suspect]
     Indication: ATTENTION DEFICIT/HYPERACTIVITY DISORDER
     Dosage: 10 MG, QD
     Route: 062
     Dates: start: 20110825
  2. MELATONIN [Concomitant]
     Dosage: UNK
     Route: 048
  3. DAYTRANA [Suspect]
     Dosage: 10 MG, QD
     Route: 062
     Dates: end: 20110501

REACTIONS (1)
  - DYSKINESIA [None]
